FAERS Safety Report 25059341 (Version 2)
Quarter: 2025Q1

REPORT INFORMATION
  Report Type: Spontaneous
  Country: US (occurrence: US)
  Receive Date: 20250310
  Receipt Date: 20250331
  Transmission Date: 20250409
  Serious: Yes (Other)
  Sender: ORPHAZYME
  Company Number: US-ZEVRA DENMARK A/S-ORP-000529

PATIENT
  Age: 3 Year
  Sex: Female

DRUGS (1)
  1. MIPLYFFA [Suspect]
     Active Substance: ARIMOCLOMOL CITRATE
     Indication: Niemann-Pick disease
     Dosage: 50 MILLIGRAM, TID
     Dates: start: 20240520, end: 20241130

REACTIONS (1)
  - Pneumonia parainfluenzae viral [Recovered/Resolved]

NARRATIVE: CASE EVENT DATE: 20250217
